FAERS Safety Report 7797395-8 (Version None)
Quarter: 2011Q4

REPORT INFORMATION
  Report Type: 
  Country: None (occurrence: None)
  Receive Date: 20111005
  Receipt Date: 20110929
  Transmission Date: 20120403
  Serious: Yes (Other)
  Sender: FDA-Public Use
  Company Number: GB-PFIZER INC-2011216823

PATIENT
  Age: 41 Year
  Sex: Female

DRUGS (1)
  1. SUMATRIPTAN SUCCINATE [Suspect]
     Dosage: UNK

REACTIONS (8)
  - SOMNOLENCE [None]
  - AMNESIA [None]
  - CONFUSIONAL STATE [None]
  - NAUSEA [None]
  - UNRESPONSIVE TO STIMULI [None]
  - DISORIENTATION [None]
  - NERVOUSNESS [None]
  - RESPIRATORY RATE INCREASED [None]
